FAERS Safety Report 7632067-1 (Version None)
Quarter: 2011Q3

REPORT INFORMATION
  Report Type: 
  Country: None (occurrence: None)
  Receive Date: 20110725
  Receipt Date: 20110712
  Transmission Date: 20111222
  Serious: Yes (Hospitalization)
  Sender: FDA-Public Use
  Company Number: US-BAYER-2011-061095

PATIENT
  Age: 60 Year
  Sex: Male
  Weight: 95.5 kg

DRUGS (6)
  1. AMBIEN [Concomitant]
     Indication: FATIGUE
     Dosage: 12.5 MG, PRN
     Route: 048
  2. SARGRAMOSTIM [Suspect]
     Dosage: 250 ?G, QD DAYS 1-14 OF 21 DAY CYCLE
     Route: 058
     Dates: start: 20110531, end: 20110613
  3. MDX-010 [Suspect]
     Dosage: 10 MG/KG, DAY 1 OF 21 DAY CYCLE
     Route: 042
     Dates: start: 20110531, end: 20110531
  4. DECADRON [Concomitant]
     Indication: MALIGNANT MELANOMA
     Dosage: 4 MG, Q6H
     Route: 048
  5. SARGRAMOSTIM [Suspect]
     Indication: MALIGNANT MELANOMA
     Dosage: 250 ?G, QD DAYS 1-14 OF 21 DAY CYCLE
     Route: 058
     Dates: start: 20110513, end: 20110613
  6. MDX-010 [Suspect]
     Indication: MALIGNANT MELANOMA
     Dosage: 10 MG/KG, DAY 1 OF 21 DAY CYCLE
     Route: 042
     Dates: start: 20110513, end: 20110513

REACTIONS (3)
  - FATIGUE [None]
  - HEADACHE [None]
  - DYSPNOEA [None]
